FAERS Safety Report 24162538 (Version 1)
Quarter: 2024Q3

REPORT INFORMATION
  Report Type: Spontaneous
  Country: US (occurrence: None)
  Receive Date: 20240731
  Receipt Date: 20240731
  Transmission Date: 20241017
  Serious: Yes (Hospitalization)
  Sender: Public
  Company Number: None

PATIENT
  Age: 78 Year
  Sex: Male
  Weight: 50.3 kg

DRUGS (13)
  1. PIMAVANSERIN [Suspect]
     Active Substance: PIMAVANSERIN
     Indication: Psychotic disorder
     Dosage: FREQUENCY : DAILY;?
     Route: 048
     Dates: start: 20240508
  2. GOCOVRI [Concomitant]
     Active Substance: AMANTADINE
  3. MIRTAZAPINE [Concomitant]
     Active Substance: MIRTAZAPINE
  4. ARICEPT [Concomitant]
     Active Substance: DONEPEZIL HYDROCHLORIDE
  5. MELATONIN [Concomitant]
     Active Substance: MELATONIN
  6. DONEPEZIL [Concomitant]
     Active Substance: DONEPEZIL\DONEPEZIL HYDROCHLORIDE
  7. CETIRIZINE [Concomitant]
     Active Substance: CETIRIZINE HYDROCHLORIDE
  8. DUTASTERIDE [Concomitant]
     Active Substance: DUTASTERIDE
  9. LINACLOTIDE [Concomitant]
     Active Substance: LINACLOTIDE
  10. VITAMINS [Concomitant]
     Active Substance: VITAMINS
  11. DOCUSATE SODIUM [Concomitant]
     Active Substance: DOCUSATE SODIUM
  12. PANTOPRAZOLE [Concomitant]
     Active Substance: PANTOPRAZOLE
  13. FLOMAX [Concomitant]
     Active Substance: TAMSULOSIN HYDROCHLORIDE

REACTIONS (5)
  - Dehydration [None]
  - Pneumonia aspiration [None]
  - Sepsis [None]
  - Urinary tract infection [None]
  - Prostatitis [None]

NARRATIVE: CASE EVENT DATE: 20240725
